FAERS Safety Report 18295784 (Version 1)
Quarter: 2020Q3

REPORT INFORMATION
  Report Type: Spontaneous
  Country: US (occurrence: US)
  Receive Date: 20200922
  Receipt Date: 20200922
  Transmission Date: 20201103
  Serious: No
  Sender: FDA-Public Use
  Company Number: US-AMARIN PHARMA, INC.-2020AMR000463

PATIENT
  Age: 66 Year
  Sex: Female

DRUGS (5)
  1. RANOLAZINE/RENEXA [Concomitant]
     Indication: CHEST PAIN
     Route: 048
     Dates: start: 2017
  2. LIPITOR [Concomitant]
     Active Substance: ATORVASTATIN CALCIUM
     Indication: BLOOD CHOLESTEROL INCREASED
     Route: 048
     Dates: start: 2017
  3. VASCEPA [Suspect]
     Active Substance: ICOSAPENT ETHYL
     Route: 048
     Dates: start: 20200706, end: 20200714
  4. ZETIA [Concomitant]
     Active Substance: EZETIMIBE
     Indication: BLOOD TRIGLYCERIDES ABNORMAL
     Route: 048
     Dates: start: 2018
  5. VASCEPA [Suspect]
     Active Substance: ICOSAPENT ETHYL
     Indication: CORONARY ARTERY OCCLUSION
     Route: 048
     Dates: start: 202005, end: 202006

REACTIONS (1)
  - Arthralgia [Unknown]

NARRATIVE: CASE EVENT DATE: 2020
